FAERS Safety Report 6134183-2 (Version None)
Quarter: 2009Q1

REPORT INFORMATION
  Report Type: 
  Country: None (occurrence: None)
  Receive Date: 20090325
  Receipt Date: 20090316
  Transmission Date: 20090719
  Serious: Yes (Disabling, Other)
  Sender: FDA-Public Use
  Company Number: 221472

PATIENT
  Age: 48 Year
  Sex: Male

DRUGS (3)
  1. HEPARIN SODIUM [Suspect]
     Indication: THROMBOSIS PROPHYLAXIS
     Dosage: 5000 IU ( EVERY 12 HOURS ) INTRAMUSCULAR
     Route: 030
  2. HEPARIN SODIUM [Suspect]
     Indication: HEPARIN NEUTRALISATION THERAPY
     Dosage: 3000 IU
  3. (SALINE /00075401/) [Concomitant]

REACTIONS (8)
  - ANEURYSM [None]
  - ARTERIAL THROMBOSIS LIMB [None]
  - CEREBRAL INFARCTION [None]
  - HEPARIN-INDUCED THROMBOCYTOPENIA [None]
  - LEG AMPUTATION [None]
  - MYOCARDIAL INFARCTION [None]
  - PERIPHERAL ISCHAEMIA [None]
  - SUBARACHNOID HAEMORRHAGE [None]
